FAERS Safety Report 15762758 (Version 1)
Quarter: 2018Q4

REPORT INFORMATION
  Report Type: Spontaneous
  Country: US (occurrence: US)
  Receive Date: 20181226
  Receipt Date: 20181226
  Transmission Date: 20190205
  Serious: Yes (Hospitalization, Other)
  Sender: FDA-Public Use
  Company Number: US-VERTEX PHARMACEUTICALS-2018-009857

PATIENT

DRUGS (1)
  1. ORKAMBI [Suspect]
     Active Substance: IVACAFTOR\LUMACAFTOR
     Indication: CYSTIC FIBROSIS
     Dosage: 400/250 MG, BID
     Route: 048

REACTIONS (11)
  - Diarrhoea [Unknown]
  - Abdominal pain [Unknown]
  - Pericarditis [Unknown]
  - Hypersensitivity [Unknown]
  - Nausea [Unknown]
  - Stevens-Johnson syndrome [Unknown]
  - Respiration abnormal [Unknown]
  - Infective pulmonary exacerbation of cystic fibrosis [Unknown]
  - Forced expiratory volume decreased [Unknown]
  - Dysphagia [Unknown]
  - Liver function test increased [Unknown]
